FAERS Safety Report 4737325-6 (Version None)
Quarter: 2005Q3

REPORT INFORMATION
  Report Type: 
  Country: None (occurrence: None)
  Receive Date: 20050808
  Receipt Date: 20050624
  Transmission Date: 20060218
  Serious: Yes (Other)
  Sender: FDA-Public Use
  Company Number: PHBS2005BE09254

PATIENT
  Age: 73 Year
  Sex: Female

DRUGS (4)
  1. ZOMETA [Suspect]
     Indication: METASTASES TO BONE
     Dosage: UNK, UNK
     Route: 042
     Dates: start: 20040401, end: 20050608
  2. BONDRONAT [Concomitant]
     Route: 065
     Dates: start: 20050614
  3. ZOLADEX [Concomitant]
     Route: 065
     Dates: start: 20040401
  4. ARIMIDEX [Concomitant]
     Route: 065
     Dates: start: 20040401

REACTIONS (3)
  - ASEPTIC NECROSIS BONE [None]
  - BONE DEBRIDEMENT [None]
  - TOOTH EXTRACTION [None]
